FAERS Safety Report 7865117-8 (Version None)
Quarter: 2011Q4

REPORT INFORMATION
  Report Type: 
  Country: None (occurrence: None)
  Receive Date: 20111028
  Receipt Date: 20101018
  Transmission Date: 20120403
  Serious: No
  Sender: FDA-Public Use
  Company Number: US-GLAXOSMITHKLINE-A0887391A

PATIENT
  Age: 59 Year
  Sex: Female

DRUGS (4)
  1. ADVAIR DISKUS 100/50 [Suspect]
     Indication: COUGH
     Dosage: 1PUFF TWICE PER DAY
     Route: 055
     Dates: start: 20100901, end: 20100901
  2. ANTIHYPERTENSIVE [Concomitant]
     Indication: HYPERTENSION
  3. MUCINEX [Concomitant]
  4. ANTIBIOTIC [Concomitant]

REACTIONS (3)
  - DRUG INEFFECTIVE [None]
  - DYSPHONIA [None]
  - COUGH [None]
